FAERS Safety Report 6635941-8 (Version None)
Quarter: 2010Q1

REPORT INFORMATION
  Report Type: 
  Country: None (occurrence: None)
  Receive Date: 20100316
  Receipt Date: 20100309
  Transmission Date: 20100710
  Serious: Yes (Hospitalization)
  Sender: FDA-Public Use
  Company Number: JP-BRISTOL-MYERS SQUIBB COMPANY-14651376

PATIENT
  Age: 65 Year
  Sex: Female
  Weight: 51 kg

DRUGS (15)
  1. ERBITUX [Suspect]
     Indication: RECTAL CANCER
     Dosage: 250MG/M2: 05NOV08- 06MAR09,121D
     Route: 042
     Dates: start: 20081029, end: 20081029
  2. IRINOTECAN HCL [Suspect]
     Indication: RECTAL CANCER
     Dosage: 29OCT-29OCT08:150MG/M2 12NOV-12NOV08:120MG/M2 28NOV-28NOV:100MG/M2 09JAN-09JAN09:140MG/M2
     Route: 042
     Dates: start: 20081029, end: 20081029
  3. DUROTEP [Suspect]
     Indication: CANCER PAIN
     Dosage: DUROTEP MT PATCH ALSO 4.2 MG AND 10.5 MG WERE GIVEN ON THE SAME DAY
     Route: 061
     Dates: start: 20081204
  4. OXYCONTIN [Suspect]
     Route: 048
     Dates: end: 20081204
  5. RESTAMIN [Concomitant]
     Indication: PREMEDICATION
     Route: 048
     Dates: start: 20081029, end: 20090306
  6. DECADRON [Concomitant]
     Indication: PREMEDICATION
     Dosage: 29OCT-06MAR09:8MG,ALSO GIVEN ORALLY FROM 30OCT08-11JAN09 4 MG.
     Route: 042
     Dates: start: 20081029, end: 20090111
  7. DECADRON [Concomitant]
     Indication: ANTIEMETIC SUPPORTIVE CARE
     Dosage: 29OCT-06MAR09:8MG,ALSO GIVEN ORALLY FROM 30OCT08-11JAN09 4 MG.
     Route: 042
     Dates: start: 20081029, end: 20090111
  8. ONDANSETRON [Concomitant]
     Indication: ANTIEMETIC SUPPORTIVE CARE
     Route: 065
     Dates: start: 20081029, end: 20090109
  9. KYTRIL [Concomitant]
     Indication: ANTIEMETIC SUPPORTIVE CARE
     Dosage: TABS
     Route: 065
     Dates: start: 20081030, end: 20090111
  10. PARIET [Concomitant]
     Dosage: TABLET FORM
     Route: 048
  11. ALOSENN [Concomitant]
     Route: 048
  12. LOXONIN [Concomitant]
     Dosage: 1 DF= 1 TABLET
     Route: 048
  13. MAGLAX [Concomitant]
     Dosage: 1 DF= 1 TABLET
     Route: 048
  14. ZYPREXA [Concomitant]
     Dosage: 1 DF = 7.5 UNITS NOT SPECIFIED
     Route: 048
     Dates: start: 20090110, end: 20090416
  15. DAI-KENCHU-TO [Concomitant]
     Dosage: 1 DF= 7.5 UNITS NOT SPECIFIED
     Route: 048

REACTIONS (2)
  - DECREASED APPETITE [None]
  - NAUSEA [None]
